FAERS Safety Report 10209604 (Version 1)
Quarter: 2014Q2

REPORT INFORMATION
  Report Type: Spontaneous
  Country: US (occurrence: US)
  Receive Date: 20140602
  Receipt Date: 20140602
  Transmission Date: 20141212
  Serious: Yes (Other)
  Sender: FDA-Public Use
  Company Number: US-AMGEN INC.-USASP2014039749

PATIENT
  Age: 64 Year
  Sex: Female

DRUGS (4)
  1. PROLIA [Suspect]
     Indication: PRODUCT USED FOR UNKNOWN INDICATION
     Route: 065
  2. ACIPHEX [Concomitant]
  3. ALLEGRA [Concomitant]
  4. LISINOPRIL [Concomitant]

REACTIONS (5)
  - Loss of consciousness [Unknown]
  - Chest discomfort [Unknown]
  - Vomiting [Unknown]
  - Diarrhoea [Unknown]
  - Erythema [Unknown]
